FAERS Safety Report 6725965-4 (Version None)
Quarter: 2010Q2

REPORT INFORMATION
  Report Type: 
  Country: None (occurrence: None)
  Receive Date: 20100512
  Receipt Date: 20100430
  Transmission Date: 20101027
  Serious: Yes (Other)
  Sender: FDA-Public Use
  Company Number: 230074J10DEU

PATIENT
  Age: 58 Year
  Sex: Male

DRUGS (3)
  1. REBIF [Suspect]
     Indication: MULTIPLE SCLEROSIS
     Dosage: 44, 3 IN 1 WK, SUBCUTANEOUS
     Route: 058
     Dates: start: 20040101
  2. KEPPRA [Suspect]
     Indication: EPILEPSY
     Dates: start: 20090101, end: 20090101
  3. INSULIN (INSULIN) [Concomitant]

REACTIONS (4)
  - DRUG INTERACTION [None]
  - EPILEPSY [None]
  - INJECTION SITE NECROSIS [None]
  - INJECTION SITE REACTION [None]
